FAERS Safety Report 9314323 (Version 22)
Quarter: 2015Q2

REPORT INFORMATION
  Report Type: Report from Study
  Country: CA (occurrence: CA)
  Receive Date: 20130529
  Receipt Date: 20150619
  Transmission Date: 20150821
  Serious: Yes (Hospitalization, Other)
  Sender: FDA-Public Use
  Company Number: PHHY2013CA052711

PATIENT
  Age: 67 Year
  Sex: Female
  Weight: 44.9 kg

DRUGS (8)
  1. TEMOZOLOMIDE. [Concomitant]
     Active Substance: TEMOZOLOMIDE
     Indication: PRODUCT USED FOR UNKNOWN INDICATION
     Dosage: 225 MG, QD
     Route: 065
  2. SANDOSTATIN LAR DEPOT [Suspect]
     Active Substance: OCTREOTIDE ACETATE
     Indication: NEUROENDOCRINE TUMOUR
     Dosage: 30 MG, EVERY 4 WEEKS
     Route: 030
     Dates: start: 20130418, end: 20150515
  3. CAPECITABINE. [Concomitant]
     Active Substance: CAPECITABINE
     Dosage: 15 DF, 8 DF IN THE MORNING 7 DF IN THE EVENING
     Route: 065
  4. DILAUDID [Concomitant]
     Active Substance: HYDROMORPHONE HYDROCHLORIDE
     Indication: ABDOMINAL PAIN UPPER
     Dosage: 9 MG IN THE MORNING AND 9 MG AT NIGHT (4 MG WHEN NEEDED), BID
     Route: 065
  5. SANDOSTATIN [Suspect]
     Active Substance: OCTREOTIDE ACETATE
     Indication: NEUROENDOCRINE TUMOUR
     Dosage: 50 UG, ONCE/SINGLE
     Route: 065
     Dates: start: 20130411, end: 20130411
  6. CAPECITABINE. [Concomitant]
     Active Substance: CAPECITABINE
     Indication: PRODUCT USED FOR UNKNOWN INDICATION
     Dosage: 15 DF, 8 DF IN THE MORNING 7 DF IN THE EVENING
     Route: 065
  7. HYDROMORPHONE [Concomitant]
     Active Substance: HYDROMORPHONE
     Dosage: 2 DF (3MG), BID (2 TABLETS IN THE MORNING AND 2 IN THE EVENING)
     Route: 065
  8. HYDROMORPHONE [Concomitant]
     Active Substance: HYDROMORPHONE
     Indication: PRODUCT USED FOR UNKNOWN INDICATION
     Dosage: 1 OR 2 PILLS OF 2 MG EVERY 3 HOURS
     Route: 065

REACTIONS (53)
  - Weight increased [Unknown]
  - Lung disorder [Unknown]
  - Confusional state [Unknown]
  - Decreased appetite [Unknown]
  - Contusion [Unknown]
  - Hypotension [Unknown]
  - Abdominal pain [Recovered/Resolved]
  - Neutrophil count decreased [Unknown]
  - Haematochezia [Unknown]
  - Chest pain [Recovered/Resolved]
  - Body temperature increased [Unknown]
  - Swelling face [Recovering/Resolving]
  - Cholelithiasis [Unknown]
  - Malignant neoplasm progression [Unknown]
  - Pain [Recovered/Resolved]
  - Palmar-plantar erythrodysaesthesia syndrome [Unknown]
  - General physical health deterioration [Unknown]
  - Protein total decreased [Unknown]
  - Intestinal obstruction [Recovered/Resolved]
  - Hepatic lesion [Unknown]
  - Weight decreased [Unknown]
  - Dry skin [Unknown]
  - Blister [Unknown]
  - Corneal reflex decreased [Unknown]
  - Fall [Unknown]
  - Arthralgia [Unknown]
  - Peripheral swelling [Recovering/Resolving]
  - Diverticulitis [Unknown]
  - Abdominal pain upper [Unknown]
  - Hyperhidrosis [Unknown]
  - Intervertebral disc degeneration [Unknown]
  - Somnolence [Unknown]
  - Abdominal distension [Recovering/Resolving]
  - Dysstasia [Unknown]
  - Diarrhoea [Unknown]
  - Pain [Recovering/Resolving]
  - Skeletal injury [Unknown]
  - Hypopnoea [Unknown]
  - Nausea [Unknown]
  - Dyspnoea [Unknown]
  - Pain in extremity [Unknown]
  - Platelet count decreased [Unknown]
  - Neck pain [Recovered/Resolved]
  - Blood pressure increased [Unknown]
  - Fatigue [Unknown]
  - Asthenia [Unknown]
  - Sepsis [Unknown]
  - Mucous stools [Unknown]
  - Infection [Unknown]
  - Chest discomfort [Unknown]
  - Musculoskeletal chest pain [Recovered/Resolved]
  - Heart rate decreased [Unknown]
  - Constipation [Recovering/Resolving]

NARRATIVE: CASE EVENT DATE: 20130513
